FAERS Safety Report 25036638 (Version 2)
Quarter: 2025Q1

REPORT INFORMATION
  Report Type: Spontaneous
  Country: IN (occurrence: IN)
  Receive Date: 20250304
  Receipt Date: 20250328
  Transmission Date: 20250409
  Serious: Yes (Other)
  Sender: RANBAXY
  Company Number: IN-SUN PHARMACEUTICAL INDUSTRIES LTD-2025R1-497027

PATIENT
  Age: 28 Year
  Sex: Male

DRUGS (2)
  1. GEMCITABINE [Suspect]
     Active Substance: GEMCITABINE
     Indication: Follicular dendritic cell sarcoma
     Route: 065
     Dates: end: 201401
  2. DOCETAXEL [Suspect]
     Active Substance: DOCETAXEL
     Indication: Follicular dendritic cell sarcoma
     Route: 065
     Dates: end: 201401

REACTIONS (1)
  - Condition aggravated [Unknown]
